FAERS Safety Report 8756732 (Version 3)
Quarter: 2012Q4

REPORT INFORMATION
  Report Type: 
  Country: US (occurrence: US)
  Receive Date: 20120828
  Receipt Date: 20120917
  Transmission Date: 20130627
  Serious: Yes (Hospitalization)
  Sender: FDA-Public Use
  Company Number: US-009507513-1208USA008254

PATIENT

DRUGS (2)
  1. JANUVIA [Suspect]
     Indication: TYPE 2 DIABETES MELLITUS
     Dosage: 100 mg, UNK
     Route: 048
     Dates: start: 201205
  2. METFORMIN [Concomitant]

REACTIONS (1)
  - Pancreatitis [Recovering/Resolving]
